FAERS Safety Report 6993696-1 (Version None)
Quarter: 2010Q3

REPORT INFORMATION
  Report Type: 
  Country: None (occurrence: None)
  Receive Date: 20100917
  Receipt Date: 20070502
  Transmission Date: 20110219
  Serious: Yes (Other)
  Sender: FDA-Public Use
  Company Number: US-ASTRAZENECA-2006UW11156

PATIENT
  Age: 16597 Day
  Sex: Female
  Weight: 90.3 kg

DRUGS (4)
  1. SEROQUEL [Suspect]
     Indication: DEPRESSION
     Dosage: 25 TO 75 MG
     Route: 048
     Dates: start: 20040203
  2. SEROQUEL [Suspect]
     Route: 048
     Dates: end: 20060101
  3. ZYPREXA [Suspect]
  4. PROZAC [Concomitant]
     Dosage: 40 TO 80 MG
     Route: 048
     Dates: start: 20040203

REACTIONS (3)
  - DIABETES MELLITUS [None]
  - DIABETES MELLITUS INADEQUATE CONTROL [None]
  - PANCREATITIS [None]
